FAERS Safety Report 9554802 (Version 1)
Quarter: 2013Q3

REPORT INFORMATION
  Report Type: Spontaneous
  Country: US (occurrence: US)
  Receive Date: 20130926
  Receipt Date: 20130926
  Transmission Date: 20140515
  Serious: No
  Sender: FDA-Public Use
  Company Number: US-BIOGENIDEC-2013BI050638

PATIENT
  Age: 35 Year
  Sex: Female

DRUGS (2)
  1. AVONEX [Suspect]
     Indication: MULTIPLE SCLEROSIS
     Route: 030
     Dates: start: 20130510
  2. AVONEX [Suspect]
     Indication: MULTIPLE SCLEROSIS
     Route: 030
     Dates: start: 20130518

REACTIONS (7)
  - Exposure via direct contact [Recovered/Resolved]
  - Crying [Unknown]
  - Abnormal behaviour [Unknown]
  - Coordination abnormal [Unknown]
  - Muscle spasticity [Unknown]
  - Pyrexia [Recovered/Resolved]
  - Depressed mood [Not Recovered/Not Resolved]
